FAERS Safety Report 25445087 (Version 4)
Quarter: 2025Q4

REPORT INFORMATION
  Report Type: Spontaneous
  Country: EU (occurrence: EU)
  Receive Date: 20250617
  Receipt Date: 20251212
  Transmission Date: 20260118
  Serious: Yes (Other)
  Sender: RANBAXY
  Company Number: EU-SUN PHARMACEUTICAL INDUSTRIES INC-2025R1-512463

PATIENT
  Age: 48 Year
  Sex: Female

DRUGS (27)
  1. APIXABAN [Suspect]
     Active Substance: APIXABAN
     Indication: Atrial fibrillation
     Dosage: UNK
     Route: 065
  2. RAMIPRIL [Suspect]
     Active Substance: RAMIPRIL
     Indication: Atrial fibrillation
     Dosage: UNK
     Route: 065
  3. RAMIPRIL [Suspect]
     Active Substance: RAMIPRIL
     Indication: Ischaemic stroke
  4. RAMIPRIL [Suspect]
     Active Substance: RAMIPRIL
     Indication: Cardiac failure
  5. RAMIPRIL [Suspect]
     Active Substance: RAMIPRIL
     Indication: Sleep disorder
  6. PANTOPRAZOLE [Suspect]
     Active Substance: PANTOPRAZOLE
     Indication: Ischaemic stroke
     Dosage: UNK
     Route: 065
  7. PANTOPRAZOLE [Suspect]
     Active Substance: PANTOPRAZOLE
     Indication: Cardiac failure
  8. PANTOPRAZOLE [Suspect]
     Active Substance: PANTOPRAZOLE
     Indication: Sleep disorder
  9. ROSUVASTATIN [Suspect]
     Active Substance: ROSUVASTATIN
     Indication: Ischaemic stroke
     Dosage: UNK
     Route: 065
  10. ROSUVASTATIN [Suspect]
     Active Substance: ROSUVASTATIN
     Indication: Cardiac failure
  11. ROSUVASTATIN [Suspect]
     Active Substance: ROSUVASTATIN
     Indication: Sleep disorder
  12. AMIODARONE [Suspect]
     Active Substance: AMIODARONE
     Indication: Atrial fibrillation
     Dosage: 400 MILLIGRAM, QD
     Route: 048
  13. ASPIRIN [Suspect]
     Active Substance: ASPIRIN
     Indication: Ischaemic stroke
     Dosage: UNK
     Route: 065
  14. ASPIRIN [Suspect]
     Active Substance: ASPIRIN
     Indication: Cardiac failure
  15. ASPIRIN [Suspect]
     Active Substance: ASPIRIN
     Indication: Sleep disorder
  16. DAPAGLIFLOZIN [Suspect]
     Active Substance: DAPAGLIFLOZIN
     Indication: Ischaemic stroke
     Dosage: UNK
     Route: 065
  17. DAPAGLIFLOZIN [Suspect]
     Active Substance: DAPAGLIFLOZIN
     Indication: Cardiac failure
  18. DAPAGLIFLOZIN [Suspect]
     Active Substance: DAPAGLIFLOZIN
     Indication: Sleep disorder
  19. METOPROLOL [Interacting]
     Active Substance: METOPROLOL
     Indication: Atrial fibrillation
     Dosage: 50 MILLIGRAM, BID
     Route: 048
  20. METOPROLOL [Interacting]
     Active Substance: METOPROLOL
     Indication: Ischaemic stroke
  21. METOPROLOL [Interacting]
     Active Substance: METOPROLOL
     Indication: Cardiac failure
  22. METOPROLOL [Interacting]
     Active Substance: METOPROLOL
     Indication: Sleep disorder
  23. TRAMADOL [Suspect]
     Active Substance: TRAMADOL
     Indication: Back pain
     Dosage: 100 MILLIGRAM, TID
     Route: 048
  24. TORSEMIDE [Suspect]
     Active Substance: TORSEMIDE
     Indication: Ischaemic stroke
     Dosage: UNK
     Route: 065
  25. TORSEMIDE [Suspect]
     Active Substance: TORSEMIDE
     Indication: Cardiac failure
  26. TORSEMIDE [Suspect]
     Active Substance: TORSEMIDE
     Indication: Sleep disorder
  27. ESTAZOLAM [Concomitant]
     Active Substance: ESTAZOLAM
     Indication: Insomnia
     Dosage: 4 MG FOR THE NIGHT
     Route: 065

REACTIONS (5)
  - Arrhythmia [Unknown]
  - Drug-disease interaction [Unknown]
  - Disease risk factor [Unknown]
  - Nausea [Unknown]
  - Vomiting [Unknown]
